FAERS Safety Report 7397793-0 (Version None)
Quarter: 2011Q2

REPORT INFORMATION
  Report Type: 
  Country: None (occurrence: None)
  Receive Date: 20110406
  Receipt Date: 20110330
  Transmission Date: 20111010
  Serious: Yes (Hospitalization, Other)
  Sender: FDA-Public Use
  Company Number: US-PFIZER INC-US-WYE-H17302110

PATIENT
  Age: 43 Year
  Sex: Female
  Weight: 40.771 kg

DRUGS (4)
  1. ROBITUSSIN CHILDREN'S COUGH AND COLD LONG ACTING [Suspect]
     Indication: INSOMNIA
     Dosage: 30.0 ML, 1X/DAY
     Route: 048
     Dates: start: 20100728, end: 20100728
  2. ZOLOFT [Suspect]
     Indication: DEPRESSION
     Dosage: UNK
     Route: 048
     Dates: end: 20100101
  3. KLONOPIN [Concomitant]
     Route: 048
  4. BENADRYL [Suspect]
     Dosage: THREE 25 MG
     Route: 048
     Dates: start: 20100728, end: 20100728

REACTIONS (13)
  - URINARY BLADDER HAEMORRHAGE [None]
  - VISUAL IMPAIRMENT [None]
  - URINARY RETENTION [None]
  - INCORRECT DOSE ADMINISTERED [None]
  - PRODUCT PACKAGING ISSUE [None]
  - ABNORMAL BEHAVIOUR [None]
  - PRODUCT QUALITY ISSUE [None]
  - PRODUCT TASTE ABNORMAL [None]
  - POLLAKIURIA [None]
  - ABASIA [None]
  - DYSURIA [None]
  - MOTOR DYSFUNCTION [None]
  - CHROMATURIA [None]
